FAERS Safety Report 6084951-0 (Version None)
Quarter: 2009Q1

REPORT INFORMATION
  Report Type: 
  Country: None (occurrence: None)
  Receive Date: 20090220
  Receipt Date: 20090212
  Transmission Date: 20090719
  Serious: Yes (Hospitalization)
  Sender: FDA-Public Use
  Company Number: US-JNJFOC-20090203826

PATIENT
  Sex: Female
  Weight: 57 kg

DRUGS (4)
  1. LEVAQUIN [Suspect]
     Indication: URINARY TRACT INFECTION
  2. BEZ-235 [Suspect]
     Indication: NEURILEMMOMA MALIGNANT
     Route: 048
  3. DIGOXIN [Concomitant]
  4. METOPROLOL TARTRATE [Concomitant]

REACTIONS (3)
  - CONVULSION [None]
  - MENTAL STATUS CHANGES [None]
  - NEURILEMMOMA MALIGNANT [None]
